FAERS Safety Report 9096254 (Version 1)
Quarter: 2013Q1

REPORT INFORMATION
  Report Type: Spontaneous
  Country: US (occurrence: US)
  Receive Date: 20130207
  Receipt Date: 20130207
  Transmission Date: 20140127
  Serious: No
  Sender: FDA-Public Use
  Company Number: US-ASTRAZENECA-2013SE07523

PATIENT
  Age: 65 Year
  Sex: Female
  Weight: 88 kg

DRUGS (4)
  1. SYMBICORT PMDI [Suspect]
     Indication: ASTHMA
     Dosage: 160 MCG TWO PUFFS, FREQUENCY TWO TIMES A DAY
     Route: 055
     Dates: start: 2012, end: 20130130
  2. ACTOS [Concomitant]
     Indication: DIABETES MELLITUS
     Route: 048
     Dates: start: 1998, end: 201208
  3. GLUCOVANCE [Concomitant]
     Indication: DIABETES MELLITUS
     Route: 048
     Dates: start: 1998
  4. BLOOD PRESSURE PILL [Concomitant]
     Indication: HYPERTENSION
     Dosage: FREQUENCY DAILY
     Route: 048
     Dates: start: 2000

REACTIONS (4)
  - Dyspnoea [Unknown]
  - Back pain [Unknown]
  - Chest pain [Unknown]
  - Headache [Unknown]
